FAERS Safety Report 10234757 (Version 2)
Quarter: 2014Q2

REPORT INFORMATION
  Report Type: Spontaneous
  Country: US (occurrence: US)
  Receive Date: 20140613
  Receipt Date: 20140613
  Transmission Date: 20141212
  Serious: No
  Sender: FDA-Public Use
  Company Number: US-DRREDDYS-USA/USA/14/0039298

PATIENT
  Age: 78 Year
  Sex: Female
  Weight: 56 kg

DRUGS (1)
  1. AMLODIPINE BESYLATE W/BENAZEPRIL HYDROCHLORIDE [Suspect]
     Indication: HYPERTENSION
     Route: 048

REACTIONS (1)
  - Abdominal distension [Not Recovered/Not Resolved]
